FAERS Safety Report 15138991 (Version 2)
Quarter: 2019Q2

REPORT INFORMATION
  Report Type: Spontaneous
  Country: CA (occurrence: CA)
  Receive Date: 20180713
  Receipt Date: 20190527
  Transmission Date: 20190711
  Serious: Yes (Other)
  Sender: FDA-Public Use
  Company Number: CA-EMD SERONO-9034756

PATIENT
  Age: 55 Year
  Sex: Female

DRUGS (46)
  1. ISOSORBIDE MONONITRATE. [Concomitant]
     Active Substance: ISOSORBIDE MONONITRATE
     Indication: PRODUCT USED FOR UNKNOWN INDICATION
     Dosage: EXTEND RELEASE
     Route: 048
  2. BISOPROLOL FUMARATE. [Concomitant]
     Active Substance: BISOPROLOL FUMARATE
     Indication: BLOOD PRESSURE ABNORMAL
     Route: 048
  3. PEGALAX [Concomitant]
     Indication: PRODUCT USED FOR UNKNOWN INDICATION
     Route: 048
  4. APO-HYDROXYZINE [Concomitant]
     Active Substance: HYDROXYZINE HYDROCHLORIDE
     Indication: HYPERSENSITIVITY
     Route: 048
  5. CLOTRIMADERM [Concomitant]
     Active Substance: CLOTRIMAZOLE
     Indication: PRODUCT USED FOR UNKNOWN INDICATION
     Route: 061
  6. DL-ALPHA TOCOPHEROL W/FISH OIL [Concomitant]
     Route: 048
  7. EURO-FERROUS SULFATE [Concomitant]
     Indication: PRODUCT USED FOR UNKNOWN INDICATION
     Route: 048
  8. LEVEMIR [Concomitant]
     Active Substance: INSULIN DETEMIR
     Indication: BLOOD INSULIN ABNORMAL
     Route: 058
  9. SEREVENT DISKUS [Concomitant]
     Active Substance: SALMETEROL XINAFOATE
     Indication: ASTHMA
  10. SYNTHROID [Concomitant]
     Active Substance: LEVOTHYROXINE SODIUM
     Indication: THYROID DISORDER
     Route: 048
  11. ALVESCO [Concomitant]
     Active Substance: CICLESONIDE
     Indication: PRODUCT USED FOR UNKNOWN INDICATION
     Dosage: AEROSOL METERED DOSE
  12. DEXILANT [Concomitant]
     Active Substance: DEXLANSOPRAZOLE
     Indication: PRODUCT USED FOR UNKNOWN INDICATION
     Dosage: DELAYED RELEASE
  13. FLOVENT [Concomitant]
     Active Substance: FLUTICASONE PROPIONATE
     Indication: PRODUCT USED FOR UNKNOWN INDICATION
  14. PREGABALIN. [Concomitant]
     Active Substance: PREGABALIN
     Indication: PRODUCT USED FOR UNKNOWN INDICATION
     Route: 048
  15. VICTOZA [Concomitant]
     Active Substance: LIRAGLUTIDE
     Indication: DIABETES MELLITUS
  16. SAIZEN [Suspect]
     Active Substance: SOMATROPIN
     Indication: GROWTH HORMONE DEFICIENCY
     Route: 058
  17. ISOSORBIDE MONONITRATE. [Concomitant]
     Active Substance: ISOSORBIDE MONONITRATE
     Route: 048
  18. GLUCOBAY [Concomitant]
     Active Substance: ACARBOSE
     Indication: DIABETES MELLITUS
     Route: 048
  19. LOPROX [Concomitant]
     Active Substance: CICLOPIROX\CICLOPIROX OLAMINE
     Indication: PRODUCT USED FOR UNKNOWN INDICATION
     Route: 061
  20. CLOPIDOGREL [Concomitant]
     Active Substance: CLOPIDOGREL BISULFATE
     Indication: CARDIOVASCULAR DISORDER
     Route: 048
  21. PIOGLITAZONE SANDOZ [Concomitant]
     Active Substance: PIOGLITAZONE
     Indication: PRODUCT USED FOR UNKNOWN INDICATION
     Route: 048
  22. DL-ALPHA TOCOPHEROL W/FISH OIL [Concomitant]
     Indication: PRODUCT USED FOR UNKNOWN INDICATION
     Route: 048
  23. LIPIDIL EZ [Concomitant]
     Active Substance: FENOFIBRATE
     Indication: PRODUCT USED FOR UNKNOWN INDICATION
     Route: 048
  24. MINT AMLODIPINE [Concomitant]
     Indication: BLOOD PRESSURE ABNORMAL
     Route: 048
  25. MYRBETRIQ [Concomitant]
     Active Substance: MIRABEGRON
     Indication: BLADDER DISORDER
     Dosage: TABLET (EXTENDED RELEASE)
     Route: 048
  26. PANTOPRAZOLE SODIUM. [Concomitant]
     Active Substance: PANTOPRAZOLE SODIUM
     Indication: PRODUCT USED FOR UNKNOWN INDICATION
     Dosage: DELAYED RELEASE
     Route: 048
  27. TEVA ROSUVASTATIN [Concomitant]
     Indication: BLOOD CHOLESTEROL ABNORMAL
     Route: 048
  28. VICTOZA [Concomitant]
     Active Substance: LIRAGLUTIDE
     Indication: OBESITY
     Dosage: MULTI DOSE PRE-INJECTOR, 30 DOSES (0.6 MG), 15 DOSES (1.2 MG), 10 DOSES (1.8 MG). 1/2/3?FORM OF ADMI
     Route: 058
  29. FORXIGA [Concomitant]
     Active Substance: DAPAGLIFLOZIN
     Indication: DIABETES MELLITUS
     Route: 048
  30. JAMP ASA [Concomitant]
     Active Substance: ASPIRIN
     Indication: CARDIOVASCULAR DISORDER
     Dosage: ENTERIC COATED
     Route: 048
  31. JAMP K CITRATE [Concomitant]
     Indication: BLOOD POTASSIUM ABNORMAL
     Route: 048
  32. NOVORAPID [Concomitant]
     Active Substance: INSULIN ASPART
     Indication: BLOOD INSULIN ABNORMAL
     Dosage: SOLUTION
     Route: 058
  33. RATIO-METFORMIN [Concomitant]
     Active Substance: METFORMIN HYDROCHLORIDE
     Indication: DIABETES MELLITUS
     Route: 048
  34. DULOXETINE. [Concomitant]
     Active Substance: DULOXETINE
     Indication: PRODUCT USED FOR UNKNOWN INDICATION
     Dosage: DELAYED RELEASE
     Route: 048
  35. TUDORZA GENUAIR [Concomitant]
     Active Substance: ACLIDINIUM BROMIDE
     Indication: PRODUCT USED FOR UNKNOWN INDICATION
     Dosage: ROUTE OF ADMINISTRATION: INHALATION?FORM OF ADMINISTRATION: POWDER, METERED DOSE, ONE INHALER WITH 3
  36. APO-SULFATRIM [Concomitant]
     Active Substance: SULFAMETHOXAZOLE\TRIMETHOPRIM
     Indication: PRODUCT USED FOR UNKNOWN INDICATION
     Route: 048
  37. MINT AMLODIPINE [Concomitant]
     Route: 048
  38. NOVO-SPIROTON [Concomitant]
     Indication: BLOOD PRESSURE ABNORMAL
     Route: 048
  39. PMS SENNOSIDES [Concomitant]
     Indication: CONSTIPATION
     Route: 048
  40. VITAMIN D3 [Concomitant]
     Active Substance: CHOLECALCIFEROL
     Route: 048
  41. APO FUROSEMIDE [Concomitant]
     Active Substance: FUROSEMIDE
     Indication: FLUID RETENTION
     Route: 048
  42. DOCUSATE SODIUM. [Concomitant]
     Active Substance: DOCUSATE SODIUM
     Indication: PRODUCT USED FOR UNKNOWN INDICATION
     Route: 048
  43. PANTOPRAZOLE SODIUM. [Concomitant]
     Active Substance: PANTOPRAZOLE SODIUM
     Route: 048
  44. PREGABALIN. [Concomitant]
     Active Substance: PREGABALIN
     Route: 048
  45. VENTOLIN HFA [Concomitant]
     Active Substance: ALBUTEROL SULFATE
     Indication: ASTHMA
  46. VITAMIN D3 [Concomitant]
     Active Substance: CHOLECALCIFEROL
     Indication: PRODUCT USED FOR UNKNOWN INDICATION
     Route: 048

REACTIONS (4)
  - Injection site pain [Unknown]
  - Product use issue [Unknown]
  - Diabetes mellitus inadequate control [Unknown]
  - Pancreatitis [Unknown]
